FAERS Safety Report 8009009-2 (Version None)
Quarter: 2011Q4

REPORT INFORMATION
  Report Type: 
  Country: None (occurrence: None)
  Receive Date: 20111227
  Receipt Date: 20111223
  Transmission Date: 20120403
  Serious: No
  Sender: FDA-Public Use
  Company Number: US-PFIZER INC-2011312802

PATIENT
  Sex: Female

DRUGS (1)
  1. GEODON [Suspect]
     Indication: MENTAL DISORDER
     Dosage: 80 MG, 2X/DAY
     Route: 048
     Dates: start: 20110901

REACTIONS (1)
  - DYSPHAGIA [None]
